FAERS Safety Report 19402804 (Version 2)
Quarter: 2021Q3

REPORT INFORMATION
  Report Type: Report from Study
  Country: US (occurrence: US)
  Receive Date: 20210610
  Receipt Date: 20210917
  Transmission Date: 20211014
  Serious: Yes (Hospitalization)
  Sender: FDA-Public Use
  Company Number: US-EISAI MEDICAL RESEARCH-EC-2021-092611

PATIENT
  Age: 62 Year
  Sex: Female
  Weight: 59 kg

DRUGS (31)
  1. GRAVIOLA [Concomitant]
  2. AZITHROMYCIN ANHYDROUS. [Concomitant]
     Active Substance: AZITHROMYCIN ANHYDROUS
  3. PANTOPRAZOLE SODIUM. [Concomitant]
     Active Substance: PANTOPRAZOLE SODIUM
  4. MODERNA COVID?19 VACCINE [Concomitant]
     Active Substance: CX-024414
  5. VITAMIN E [Concomitant]
     Active Substance: .ALPHA.-TOCOPHEROL
  6. POTASSIUM GLUCONATE [Concomitant]
     Active Substance: POTASSIUM GLUCONATE
     Dates: start: 2021
  7. MAGNESIUM OXIDE. [Concomitant]
     Active Substance: MAGNESIUM OXIDE
  8. CHOLESTYRAMINE. [Concomitant]
     Active Substance: CHOLESTYRAMINE
  9. LENVIMA [Suspect]
     Active Substance: LENVATINIB
     Indication: UTERINE CANCER
     Route: 048
     Dates: start: 202105, end: 2021
  10. BENZONATATE. [Concomitant]
     Active Substance: BENZONATATE
  11. FLUTICASONE PROPIONATE. [Concomitant]
     Active Substance: FLUTICASONE PROPIONATE
  12. GABAPENTIN. [Concomitant]
     Active Substance: GABAPENTIN
  13. COLLAGEN [Concomitant]
     Active Substance: COLLAGEN
  14. FLUCONAZOLE. [Concomitant]
     Active Substance: FLUCONAZOLE
  15. CARVEDILOL. [Concomitant]
     Active Substance: CARVEDILOL
  16. NIFEDIPINE. [Concomitant]
     Active Substance: NIFEDIPINE
     Dates: start: 20210525
  17. LENVIMA [Suspect]
     Active Substance: LENVATINIB
     Indication: ENDOMETRIAL CANCER
     Route: 048
     Dates: start: 20210413, end: 202105
  18. PROBIOTIC ACIDOPHILUS [Concomitant]
     Active Substance: LACTOBACILLUS ACIDOPHILUS
  19. DRONABINOL. [Concomitant]
     Active Substance: DRONABINOL
  20. HYDROCODONE?CHLORPHENI [Concomitant]
  21. METHYLPREDNISOLONE. [Concomitant]
     Active Substance: METHYLPREDNISOLONE
     Dates: start: 202105
  22. TRELEGY ELLIPTA [Concomitant]
     Active Substance: FLUTICASONE FUROATE\UMECLIDINIUM BROMIDE\VILANTEROL TRIFENATATE
  23. LENVIMA [Suspect]
     Active Substance: LENVATINIB
     Route: 048
     Dates: start: 2021
  24. VITAMIN B COMPLEX [Concomitant]
     Active Substance: CYANOCOBALAMIN\DEXPANTHENOL\NIACINAMIDE\PYRIDOXINE HYDROCHLORIDE\RIBOFLAVIN 5^-PHOSPHATE SODIUM\THIAMINE HYDROCHLORIDE\VITAMIN B COMPLEX
  25. ALBUTEROL SULFATE HFA [Concomitant]
     Active Substance: ALBUTEROL SULFATE
  26. ROSUVASTATIN CALCIUM. [Concomitant]
     Active Substance: ROSUVASTATIN CALCIUM
  27. LISINOPRIL. [Concomitant]
     Active Substance: LISINOPRIL
  28. LEVOTHYROXINE SODIUM. [Concomitant]
     Active Substance: LEVOTHYROXINE SODIUM
  29. FISH OIL [Concomitant]
     Active Substance: FISH OIL
  30. MULTIVITAMIN [Concomitant]
     Active Substance: VITAMINS
  31. LIDOCAINE;PRILOCAINE [Concomitant]

REACTIONS (13)
  - Pleural effusion [Not Recovered/Not Resolved]
  - Tongue haemorrhage [Unknown]
  - Blood potassium decreased [Unknown]
  - Malignant neoplasm progression [Not Recovered/Not Resolved]
  - Ageusia [Unknown]
  - Feeding disorder [Unknown]
  - Dry mouth [Recovering/Resolving]
  - Weight decreased [Unknown]
  - Swollen tongue [Unknown]
  - Stomatitis [Recovering/Resolving]
  - Blood pressure increased [Unknown]
  - Oral pain [Recovering/Resolving]
  - Tongue disorder [Recovering/Resolving]

NARRATIVE: CASE EVENT DATE: 2021
